FAERS Safety Report 8777850 (Version 1)
Quarter: 2012Q4

REPORT INFORMATION
  Report Type: 
  Country: US (occurrence: US)
  Receive Date: 20120911
  Receipt Date: 20120911
  Transmission Date: 20130627
  Serious: Yes (Other)
  Sender: FDA-Public Use
  Company Number: PHHY2012US077831

PATIENT
  Age: 19 Year

DRUGS (2)
  1. SANDIMMUNE NEORAL [Suspect]
     Indication: CRANIOCEREBRAL INJURY
     Dosage: 5 mg/kg (Total dose of 410 mg)
  2. DEXTROSE [Concomitant]
     Dosage: 250 ml, UNK

REACTIONS (9)
  - Deep vein thrombosis [Unknown]
  - Intracranial pressure increased [Unknown]
  - Pneumothorax [Unknown]
  - Leukocytosis [Unknown]
  - Pyrexia [Unknown]
  - Anaemia [Unknown]
  - Alanine aminotransferase increased [Unknown]
  - Aspartate aminotransferase increased [Unknown]
  - Blood alkaline phosphatase increased [Unknown]
